FAERS Safety Report 5697554-4 (Version None)
Quarter: 2008Q2

REPORT INFORMATION
  Report Type: 
  Country: None (occurrence: None)
  Receive Date: 20080408
  Receipt Date: 20080327
  Transmission Date: 20081010
  Serious: Yes (Other)
  Sender: FDA-Public Use
  Company Number: US-AMGEN-QUU271627

PATIENT
  Sex: Female

DRUGS (2)
  1. ENBREL [Suspect]
     Indication: RHEUMATOID ARTHRITIS
     Route: 058
     Dates: start: 20070806
  2. METHOTREXATE [Concomitant]
     Route: 048
     Dates: start: 20050526

REACTIONS (4)
  - ABDOMINAL WALL CYST [None]
  - ABDOMINAL WOUND DEHISCENCE [None]
  - ENDOMETRIOSIS [None]
  - VAGINITIS BACTERIAL [None]
